FAERS Safety Report 10683250 (Version 4)
Quarter: 2015Q1

REPORT INFORMATION
  Report Type: Spontaneous
  Country: DE (occurrence: DE)
  Receive Date: 20141230
  Receipt Date: 20150220
  Transmission Date: 20150720
  Serious: Yes (Life-Threatening, Hospitalization, Other)
  Sender: FDA-Public Use
  Company Number: PHHY2014DE169863

PATIENT
  Sex: Male
  Weight: 90 kg

DRUGS (2)
  1. FLUANXOL//FLUPENTIXOL DIHYDROCHLORIDE [Concomitant]
     Indication: PRODUCT USED FOR UNKNOWN INDICATION
     Dosage: UNK
     Route: 065
  2. LEPONEX [Suspect]
     Active Substance: CLOZAPINE
     Indication: SCHIZOPHRENIA, PARANOID TYPE
     Dosage: 275 MG, QD
     Route: 048
     Dates: start: 2003

REACTIONS (4)
  - Ejection fraction decreased [Recovering/Resolving]
  - Electrocardiogram abnormal [Unknown]
  - Left ventricular failure [Recovering/Resolving]
  - Congestive cardiomyopathy [Not Recovered/Not Resolved]

NARRATIVE: CASE EVENT DATE: 2008
